FAERS Safety Report 16336168 (Version 1)
Quarter: 2019Q2

REPORT INFORMATION
  Report Type: Report from Study
  Country: NL (occurrence: NL)
  Receive Date: 20190521
  Receipt Date: 20190521
  Transmission Date: 20190711
  Serious: Yes (Hospitalization)
  Sender: FDA-Public Use
  Company Number: NL-ACCORD-128284

PATIENT
  Age: 69 Year
  Sex: Female

DRUGS (2)
  1. METHOTREXATE. [Suspect]
     Active Substance: METHOTREXATE
     Indication: RHEUMATOID ARTHRITIS
     Dosage: 7.5 MG, 1 X/W
     Dates: start: 20150602, end: 20190122
  2. ETANERCEPT [Suspect]
     Active Substance: ETANERCEPT
     Indication: RHEUMATOID ARTHRITIS
     Dosage: 50MG, 1X/W
     Dates: start: 20171115, end: 20190122

REACTIONS (1)
  - Arthritis bacterial [Recovered/Resolved]

NARRATIVE: CASE EVENT DATE: 20190122
